FAERS Safety Report 25641759 (Version 1)
Quarter: 2025Q3

REPORT INFORMATION
  Report Type: Spontaneous
  Country: EU (occurrence: EU)
  Receive Date: 20250804
  Receipt Date: 20250804
  Transmission Date: 20251021
  Serious: Yes (Life-Threatening, Hospitalization, Disabling)
  Sender: SERVIER
  Company Number: EU-SERVIER-S25011254

PATIENT

DRUGS (1)
  1. VORASIDENIB [Suspect]
     Active Substance: VORASIDENIB
     Indication: Astrocytoma
     Route: 048
     Dates: start: 202412

REACTIONS (11)
  - Sepsis [Unknown]
  - Epilepsy [Unknown]
  - Visual field defect [Unknown]
  - Necrosis [Unknown]
  - Tremor [Unknown]
  - Pyrexia [Unknown]
  - Oedema [Unknown]
  - Red blood cell count decreased [Unknown]
  - Haemoglobin decreased [Unknown]
  - Dizziness [Unknown]
  - Escherichia urinary tract infection [Unknown]

NARRATIVE: CASE EVENT DATE: 20241201
